FAERS Safety Report 7277096-5 (Version None)
Quarter: 2011Q1

REPORT INFORMATION
  Report Type: 
  Country: None (occurrence: None)
  Receive Date: 20110202
  Receipt Date: 20110202
  Transmission Date: 20110831
  Serious: Yes (Other)
  Sender: FDA-Public Use
  Company Number: None

PATIENT
  Sex: Male
  Weight: 113.3993 kg

DRUGS (2)
  1. LEXAPRO [Suspect]
     Indication: DEPRESSION
  2. TESTIM [Suspect]
     Indication: BLOOD TESTOSTERONE DECREASED

REACTIONS (4)
  - MEMORY IMPAIRMENT [None]
  - ABNORMAL BEHAVIOUR [None]
  - SOCIAL AVOIDANT BEHAVIOUR [None]
  - AGGRESSION [None]
